FAERS Safety Report 8827655 (Version 2)
Quarter: 2012Q4

REPORT INFORMATION
  Report Type: 
  Country: US (occurrence: US)
  Receive Date: 20121005
  Receipt Date: 20121213
  Transmission Date: 20130627
  Serious: Yes (Other)
  Sender: FDA-Public Use
  Company Number: PHEH2012US019035

PATIENT
  Sex: Male
  Weight: 94.15 kg

DRUGS (1)
  1. SANDOSTATIN LAR DEPOT [Suspect]
     Dosage: 30 mg, every 2 weeks
     Route: 030
     Dates: start: 1998, end: 201210

REACTIONS (20)
  - Haemorrhoids [Unknown]
  - Rectal haemorrhage [Unknown]
  - Carcinoid tumour of the gastrointestinal tract [Not Recovered/Not Resolved]
  - Malignant neoplasm progression [Not Recovered/Not Resolved]
  - Metastases to liver [Not Recovered/Not Resolved]
  - Faecal incontinence [Unknown]
  - Mental impairment [Unknown]
  - Proctalgia [Unknown]
  - Dysuria [Unknown]
  - Gait disturbance [Unknown]
  - Confusional state [Unknown]
  - Cough [Unknown]
  - Feeling cold [Unknown]
  - Dyspnoea [Unknown]
  - Muscular weakness [Unknown]
  - Insomnia [Unknown]
  - Dizziness [Unknown]
  - Headache [Unknown]
  - Depression [Unknown]
  - Fatigue [Unknown]
